FAERS Safety Report 7116823-4 (Version None)
Quarter: 2010Q4

REPORT INFORMATION
  Report Type: 
  Country: None (occurrence: None)
  Receive Date: 20101122
  Receipt Date: 20101109
  Transmission Date: 20110411
  Serious: Yes (Other)
  Sender: FDA-Public Use
  Company Number: US-RB-015239-10

PATIENT
  Age: 49 Year
  Sex: Female

DRUGS (5)
  1. MUCINEX [Suspect]
     Route: 048
  2. LIPITOR [Suspect]
  3. SPIRONOLACTONE [Suspect]
  4. ACETYLSALICYLIC ACID [Suspect]
  5. PARACETAMOL AND PROMETHAZINE HYDROCHLORIDE [Suspect]

REACTIONS (1)
  - ARTHRALGIA [None]
